FAERS Safety Report 8047426-5 (Version None)
Quarter: 2012Q1

REPORT INFORMATION
  Report Type: 
  Country: None (occurrence: None)
  Receive Date: 20120116
  Receipt Date: 20120112
  Transmission Date: 20120608
  Serious: Yes (Life-Threatening, Hospitalization)
  Sender: FDA-Public Use
  Company Number: JP-BRISTOL-MYERS SQUIBB COMPANY-16186314

PATIENT
  Age: 72 Year
  Sex: Female
  Weight: 40 kg

DRUGS (2)
  1. PARAPLATIN [Suspect]
     Indication: OVARIAN CANCER
     Dosage: FREQ:OTHER AUC:6
     Route: 041
     Dates: start: 20110830, end: 20110927
  2. TAXOL [Suspect]
     Indication: OVARIAN CANCER
     Dosage: 180MG/M2:224 MG ON 30AUG11 STOPPED ON 27SEP11 FREQ:OTHER.
     Route: 041

REACTIONS (2)
  - GASTROINTESTINAL PERFORATION [None]
  - ABDOMINAL PAIN LOWER [None]
